FAERS Safety Report 11618517 (Version 1)
Quarter: 2015Q4

REPORT INFORMATION
  Report Type: Spontaneous
  Country: US (occurrence: US)
  Receive Date: 20151012
  Receipt Date: 20151012
  Transmission Date: 20160304
  Serious: Yes (Other)
  Sender: FDA-Public Use
  Company Number: US-HOSPIRA-3030296

PATIENT
  Age: 63 Year
  Sex: Male

DRUGS (3)
  1. BUPIVICAINE [Concomitant]
     Active Substance: BUPIVACAINE
     Indication: PAIN MANAGEMENT
     Dosage: 0.1%; FOR THE SECOND 24 HOURS
     Route: 013
  2. BUPIVICAINE [Concomitant]
     Active Substance: BUPIVACAINE
     Indication: PAIN MANAGEMENT
     Dosage: 0.1%; FOR THE SECOND 24 HOURS
     Route: 013
  3. BUPIVACAINE HYDROCHLORIDE. [Suspect]
     Active Substance: BUPIVACAINE HYDROCHLORIDE
     Indication: SPINAL ANAESTHESIA
     Route: 024

REACTIONS (2)
  - Neurological symptom [Unknown]
  - Condition aggravated [Unknown]
